FAERS Safety Report 8549355-7 (Version None)
Quarter: 2012Q3

REPORT INFORMATION
  Report Type: 
  Country: None (occurrence: None)
  Receive Date: 20120720
  Receipt Date: 20120720
  Transmission Date: 20120928
  Serious: Yes (Other)
  Sender: FDA-Public Use
  Company Number: None

PATIENT
  Sex: Female

DRUGS (4)
  1. TRIAMTERENE AND HYDROCHLOROTHIAZIDE [Concomitant]
  2. ALENDRONATE SODIUM [Suspect]
     Indication: OSTEOPENIA
     Dosage: 70MG ONCE A WEEK PO
     Route: 048
  3. CRESTOR [Concomitant]
  4. LORSATAN POTASSIUM [Concomitant]

REACTIONS (5)
  - NAUSEA [None]
  - PALLOR [None]
  - SYNCOPE [None]
  - CONSTIPATION [None]
  - SKIN DISCOLOURATION [None]
